FAERS Safety Report 11419388 (Version 2)
Quarter: 2015Q3

REPORT INFORMATION
  Report Type: Spontaneous
  Country: US (occurrence: US)
  Receive Date: 20150826
  Receipt Date: 20150928
  Transmission Date: 20151125
  Serious: No
  Sender: FDA-Public Use
  Company Number: US-CELGENEUS-USA-2015072286

PATIENT
  Age: 51 Year
  Sex: Male

DRUGS (1)
  1. OTEZLA [Suspect]
     Active Substance: APREMILAST
     Indication: PSORIATIC ARTHROPATHY
     Dosage: 60 MILLIGRAM
     Route: 048
     Dates: start: 20150608

REACTIONS (5)
  - Abnormal dreams [Unknown]
  - Abdominal pain upper [Unknown]
  - Diarrhoea [Unknown]
  - Depressed mood [Unknown]
  - Mood altered [Unknown]

NARRATIVE: CASE EVENT DATE: 20150608
